FAERS Safety Report 21268814 (Version 2)
Quarter: 2024Q3

REPORT INFORMATION
  Report Type: Spontaneous
  Country: US (occurrence: US)
  Receive Date: 20220830
  Receipt Date: 20240808
  Transmission Date: 20241016
  Serious: No
  Sender: TARO
  Company Number: US-TARO PHARMACEUTICALS USA INC.-2022TAR00409

PATIENT

DRUGS (1)
  1. CLOBETASOL PROPIONATE [Suspect]
     Active Substance: CLOBETASOL PROPIONATE
     Indication: Eczema
     Dosage: UNK, BID, BACK AND SIDE
     Route: 065
     Dates: start: 20211215, end: 20220105

REACTIONS (3)
  - Injury [Not Recovered/Not Resolved]
  - Product quality issue [Unknown]
  - Pain [Unknown]

NARRATIVE: CASE EVENT DATE: 20211215
